APPROVED DRUG PRODUCT: CLOBAZAM
Active Ingredient: CLOBAZAM
Strength: 20MG
Dosage Form/Route: TABLET;ORAL
Application: A210545 | Product #002 | TE Code: AB
Applicant: LUPIN LTD
Approved: Dec 14, 2018 | RLD: No | RS: No | Type: RX